FAERS Safety Report 21550589 (Version 2)
Quarter: 2022Q4

REPORT INFORMATION
  Report Type: Spontaneous
  Country: US (occurrence: US)
  Receive Date: 20221103
  Receipt Date: 20221119
  Transmission Date: 20230113
  Serious: Yes (Hospitalization)
  Sender: FDA-Public Use
  Company Number: US-TEVA-2022-US-2821421

PATIENT
  Age: 65 Year
  Sex: Male

DRUGS (7)
  1. ARSENIC TRIOXIDE [Suspect]
     Active Substance: ARSENIC TRIOXIDE
     Indication: Acute promyelocytic leukaemia
     Dosage: 0.15 MG/KG/DOSE; INDUCTION THERAPY
     Route: 042
  2. ARSENIC TRIOXIDE [Suspect]
     Active Substance: ARSENIC TRIOXIDE
     Dosage: CONSOLIDATION THERAPY
     Route: 065
  3. ZOLPIDEM [Suspect]
     Active Substance: ZOLPIDEM TARTRATE
     Indication: Product used for unknown indication
     Route: 065
  4. ONDANSETRON [Suspect]
     Active Substance: ONDANSETRON
     Indication: Product used for unknown indication
     Route: 065
  5. ALLTRANS RETINOIC ACID [Concomitant]
     Indication: Acute promyelocytic leukaemia
     Dosage: 22.5 MG/M2/DOSE; INDUCTION THERAPY
     Route: 048
  6. ALLTRANS RETINOIC ACID [Concomitant]
     Dosage: CONSOLIDATION THERAPY
     Route: 065
  7. PREDNISONE [Concomitant]
     Active Substance: PREDNISONE
     Indication: Prophylaxis
     Dosage: .5 MG/KG DAILY;
     Route: 048

REACTIONS (4)
  - Neuropathy peripheral [Unknown]
  - Electrocardiogram QT prolonged [Unknown]
  - Dermatitis [Unknown]
  - Atrioventricular block first degree [Recovered/Resolved]
